FAERS Safety Report 13148210 (Version 1)
Quarter: 2017Q1

REPORT INFORMATION
  Report Type: Spontaneous
  Country: US (occurrence: US)
  Receive Date: 20170125
  Receipt Date: 20170125
  Transmission Date: 20170428
  Serious: No
  Sender: FDA-Public Use
  Company Number: US-TEVA-730526ACC

PATIENT
  Age: 38 Year
  Sex: Female

DRUGS (3)
  1. COPAXONE [Suspect]
     Active Substance: GLATIRAMER ACETATE
     Indication: MULTIPLE SCLEROSIS
     Dosage: 17.1429 MILLIGRAM/MILLILITERS DAILY; ONE SYRINGE
     Route: 058
     Dates: start: 20160830
  2. VITAMIN D-3 TAB [Concomitant]
  3. VITAMIN B-12 TAB [Concomitant]

REACTIONS (1)
  - Pruritus [Unknown]

NARRATIVE: CASE EVENT DATE: 20161031
